FAERS Safety Report 23215567 (Version 1)
Quarter: 2023Q4

REPORT INFORMATION
  Report Type: Spontaneous
  Country: DK (occurrence: DK)
  Receive Date: 20231122
  Receipt Date: 20231122
  Transmission Date: 20240109
  Serious: Yes (Death, Other)
  Sender: FDA-Public Use
  Company Number: DK-BAYER-2023A155814

PATIENT
  Age: 85 Year
  Sex: Female

DRUGS (3)
  1. EYLEA [Suspect]
     Active Substance: AFLIBERCEPT
     Indication: Retinal vein occlusion
     Dosage: UNK,T/T OF RIGHT EYE STARTED,RECEIVED ALTOGETHER 51 EYLEA INJ,SOL FOR INJ IN PFS,40 MG/ML
     Route: 031
     Dates: start: 20211213
  2. EYLEA [Suspect]
     Active Substance: AFLIBERCEPT
     Indication: Macular oedema
     Dosage: UNK,T/TOF LEFT EYE STARTED,SOL FOR INJ IN PFS,40 MG/ML
     Route: 031
     Dates: start: 20230613
  3. EYLEA [Suspect]
     Active Substance: AFLIBERCEPT
     Indication: Age-related macular degeneration
     Dosage: 2 MG,ONCE,INJECTED IN OS,SAME DATE OD INJECTED WITH EYLEA,SOL FOR INJ IN PFS,40 MG/ML
     Dates: start: 20230922, end: 20230922

REACTIONS (6)
  - Lung cancer metastatic [Fatal]
  - Blindness unilateral [Unknown]
  - Endophthalmitis [Unknown]
  - Visual impairment [Unknown]
  - Eye pain [Unknown]
  - Ocular hyperaemia [Unknown]

NARRATIVE: CASE EVENT DATE: 20231005
